FAERS Safety Report 24892883 (Version 1)
Quarter: 2025Q1

REPORT INFORMATION
  Report Type: Spontaneous
  Country: FR (occurrence: FR)
  Receive Date: 20250128
  Receipt Date: 20250128
  Transmission Date: 20250409
  Serious: Yes (Hospitalization, Other)
  Sender: BRISTOL-MYERS SQUIBB COMPANY
  Company Number: None

PATIENT
  Age: 72 Year
  Sex: Female
  Weight: 67 kg

DRUGS (1)
  1. ELIQUIS [Suspect]
     Active Substance: APIXABAN
     Indication: Anticoagulant therapy
     Dosage: 5 MG MORNING AND EVENING
     Route: 048
     Dates: end: 20241231

REACTIONS (2)
  - Rectal haemorrhage [Recovered/Resolved]
  - Herbal interaction [Recovered/Resolved]

NARRATIVE: CASE EVENT DATE: 20241230
